FAERS Safety Report 19664785 (Version 1)
Quarter: 2021Q3

REPORT INFORMATION
  Report Type: Spontaneous
  Country: US (occurrence: US)
  Receive Date: 20210806
  Receipt Date: 20210806
  Transmission Date: 20211014
  Serious: No
  Sender: FDA-Public Use
  Company Number: US-PURDUE PHARMA-USA-2021-0264153

PATIENT
  Age: 65 Year
  Sex: Male
  Weight: 82.54 kg

DRUGS (2)
  1. BUPRENORPHINE TRANSDERMAL PATCH (SIMILAR TO NDA 21?306) [Suspect]
     Active Substance: BUPRENORPHINE
     Indication: BACK PAIN
     Dosage: 10 MCG/HR, WEEKLY
     Route: 062
     Dates: start: 20200104, end: 20210626
  2. BUTRANS [Suspect]
     Active Substance: BUPRENORPHINE
     Indication: PRODUCT USED FOR UNKNOWN INDICATION
     Dosage: 10 MCG/HR, WEEKLY
     Route: 062

REACTIONS (5)
  - Application site burn [Unknown]
  - Application site pruritus [Unknown]
  - Application site rash [Recovered/Resolved]
  - Application site discharge [Unknown]
  - Application site erythema [Unknown]

NARRATIVE: CASE EVENT DATE: 202103
